FAERS Safety Report 23635126 (Version 1)
Quarter: 2024Q1

REPORT INFORMATION
  Report Type: Spontaneous
  Country: CN (occurrence: None)
  Receive Date: 20240315
  Receipt Date: 20240315
  Transmission Date: 20240409
  Serious: Yes (Hospitalization)
  Sender: FDA-Public Use
  Company Number: 2024A059901

PATIENT
  Age: 28668 Day
  Sex: Female
  Weight: 44 kg

DRUGS (2)
  1. DAPAGLIFLOZIN [Suspect]
     Active Substance: DAPAGLIFLOZIN
     Indication: Blood glucose
     Route: 048
     Dates: start: 20240221, end: 20240228
  2. IRBESARTAN [Concomitant]
     Active Substance: IRBESARTAN
     Indication: Blood glucose
     Route: 048
     Dates: start: 20240221, end: 20240309

REACTIONS (2)
  - Fungal infection [Recovering/Resolving]
  - Urinary tract infection [Recovering/Resolving]

NARRATIVE: CASE EVENT DATE: 20240228
